FAERS Safety Report 9155595 (Version 1)
Quarter: 2013Q1

REPORT INFORMATION
  Report Type: Spontaneous
  Country: GB (occurrence: GB)
  Receive Date: 20130311
  Receipt Date: 20130311
  Transmission Date: 20140127
  Serious: Yes (Other)
  Sender: FDA-Public Use
  Company Number: GB-GLAXOSMITHKLINE-B0872163A

PATIENT
  Age: 36 Year
  Sex: Female
  Weight: 48.07 kg

DRUGS (2)
  1. BECLOMETHASONE DIPROPIONATE [Suspect]
     Indication: ASTHMA
     Dosage: 4IUAX PER DAY
     Route: 055
     Dates: start: 20130204
  2. LAMOTRIGINE [Concomitant]
     Indication: BIPOLAR DISORDER

REACTIONS (4)
  - Hypogeusia [Not Recovered/Not Resolved]
  - Anger [Not Recovered/Not Resolved]
  - Aggression [Not Recovered/Not Resolved]
  - Personality change [Not Recovered/Not Resolved]
